FAERS Safety Report 6679185-2 (Version None)
Quarter: 2010Q2

REPORT INFORMATION
  Report Type: 
  Country: None (occurrence: None)
  Receive Date: 20100413
  Receipt Date: 20100408
  Transmission Date: 20101027
  Serious: Yes (Other)
  Sender: FDA-Public Use
  Company Number: US-PURDUE-USA-2010-0043150

PATIENT
  Sex: Female

DRUGS (1)
  1. CHLORHEXIDINE GLUCONATE [Suspect]
     Indication: INFECTION PROPHYLAXIS
     Dosage: UNK APPLIC, UNK
     Route: 061
     Dates: start: 20100302, end: 20100302

REACTIONS (12)
  - AURICULAR SWELLING [None]
  - BLISTER [None]
  - BURNS SECOND DEGREE [None]
  - COUGH [None]
  - DRUG HYPERSENSITIVITY [None]
  - DYSPHAGIA [None]
  - DYSPNOEA [None]
  - HYPOPHAGIA [None]
  - POST PROCEDURAL SWELLING [None]
  - SWELLING FACE [None]
  - VOMITING [None]
  - WEIGHT DECREASED [None]
